FAERS Safety Report 7722189 (Version 2)
Quarter: 2012Q4

REPORT INFORMATION
  Report Type: 
  Country: JP (occurrence: JP)
  Receive Date: 20101220
  Receipt Date: 20120927
  Transmission Date: 20130627
  Serious: Yes (Other)
  Sender: FDA-Public Use
  Company Number: JP-PFIZER INC-2010116918

PATIENT
  Age: 52 Year
  Sex: Female

DRUGS (5)
  1. MEDROXYPROGESTERONE ACETATE [Suspect]
     Indication: LYMPHANGIOLEIOMYOMATOSIS
     Dosage: 200 mg, 2x/day
     Route: 048
     Dates: start: 19920904, end: 20090811
  2. SUPRECUR [Suspect]
     Indication: LYMPHANGIOLEIOMYOMATOSIS
     Dosage: 1 DF, 3x/day
     Route: 045
     Dates: start: 19920919, end: 199509
  3. SUPRECUR [Suspect]
     Dosage: 1 DF, 3x/day
     Route: 045
     Dates: start: 199911, end: 20090811
  4. NASANYL [Concomitant]
     Indication: LYMPHANGIOLEIOMYOMATOSIS
     Dosage: 1 DF, 3x/day
     Route: 045
     Dates: start: 199509, end: 199511
  5. NASANYL [Concomitant]
     Dosage: 1 DF, 2x/day
     Route: 045
     Dates: start: 199511, end: 199911

REACTIONS (2)
  - Meningioma [Recovering/Resolving]
  - Pneumothorax [None]
